FAERS Safety Report 6851179-3 (Version None)
Quarter: 2010Q3

REPORT INFORMATION
  Report Type: 
  Country: None (occurrence: None)
  Receive Date: 20100716
  Receipt Date: 20100707
  Transmission Date: 20110219
  Serious: Yes (Other)
  Sender: FDA-Public Use
  Company Number: DE-AMGEN-KDL404531

PATIENT
  Age: 14 Year
  Sex: Male
  Weight: 48 kg

DRUGS (8)
  1. NPLATE [Suspect]
     Indication: THROMBOCYTOPENIA
     Route: 058
     Dates: start: 20100316
  2. AUGMENTAN [Concomitant]
     Route: 042
     Dates: start: 20100316, end: 20100323
  3. LEVOTHYROXINE SODIUM [Concomitant]
     Route: 048
  4. NOVOSEVEN [Concomitant]
     Route: 042
     Dates: start: 20100319
  5. MERONEM [Concomitant]
     Route: 042
     Dates: start: 20100325, end: 20100329
  6. FORTUM [Concomitant]
     Route: 042
     Dates: start: 20100323, end: 20100325
  7. TEICOPLANIN [Concomitant]
     Route: 042
     Dates: start: 20100323, end: 20100329
  8. SIROLIMUS [Concomitant]
     Route: 048
     Dates: start: 20100329

REACTIONS (2)
  - ARTHRITIS [None]
  - IRIDOCYCLITIS [None]
